FAERS Safety Report 4555345-1 (Version None)
Quarter: 2004Q4

REPORT INFORMATION
  Report Type: 
  Country: None (occurrence: None)
  Receive Date: 20041217
  Receipt Date: 20040804
  Transmission Date: 20050328
  Serious: No
  Sender: FDA-Public Use
  Company Number: 2004-BP-06586BP

PATIENT
  Age: 67 Year
  Weight: 64.4 kg

DRUGS (1)
  1. SPIRIVA [Suspect]
     Indication: CHRONIC OBSTRUCTIVE AIRWAYS DISEASE
     Dosage: 18 MCG (18 MCG, 1 INHALATION DAILY), IH
     Route: 055
     Dates: start: 20040729, end: 20040802

REACTIONS (4)
  - DYSURIA [None]
  - PRURITUS [None]
  - VISION BLURRED [None]
  - VISUAL ACUITY REDUCED [None]
